FAERS Safety Report 5922139-1 (Version None)
Quarter: 2008Q4

REPORT INFORMATION
  Report Type: 
  Country: None (occurrence: None)
  Receive Date: 20081017
  Receipt Date: 20081009
  Transmission Date: 20090506
  Serious: Yes (Life-Threatening, Other)
  Sender: FDA-Public Use
  Company Number: CA-BAYER-200835578NA

PATIENT
  Age: 25 Year
  Sex: Female

DRUGS (1)
  1. YASMIN [Suspect]
     Indication: DRUG USE FOR UNKNOWN INDICATION
     Route: 048

REACTIONS (7)
  - ANAPHYLACTIC SHOCK [None]
  - ANXIETY [None]
  - DYSPNOEA [None]
  - MALAISE [None]
  - SYNCOPE [None]
  - TACHYARRHYTHMIA [None]
  - URTICARIA [None]
